FAERS Safety Report 7345603-X (Version None)
Quarter: 2011Q1

REPORT INFORMATION
  Report Type: 
  Country: None (occurrence: None)
  Receive Date: 20110310
  Receipt Date: 20110301
  Transmission Date: 20110831
  Serious: Yes (Death, Hospitalization)
  Sender: FDA-Public Use
  Company Number: A0897709A

PATIENT
  Age: 30 Year
  Sex: Male

DRUGS (3)
  1. ROSIGLITAZONE MALEATE [Suspect]
     Dosage: 4MG UNKNOWN
     Route: 048
     Dates: start: 20040101
  2. AVANDAMET [Suspect]
     Indication: DIABETES MELLITUS
     Route: 048
     Dates: end: 20050101
  3. AVANDIA [Suspect]
     Indication: DIABETES MELLITUS
     Dosage: 4MG UNKNOWN
     Route: 048
     Dates: start: 20010101, end: 20050101

REACTIONS (5)
  - MYOCARDIAL INFARCTION [None]
  - PULMONARY EMBOLISM [None]
  - DEEP VEIN THROMBOSIS [None]
  - CEREBROVASCULAR ACCIDENT [None]
  - THROMBOSIS [None]
